FAERS Safety Report 19867122 (Version 1)
Quarter: 2021Q3

REPORT INFORMATION
  Report Type: Spontaneous
  Country: US (occurrence: US)
  Receive Date: 20210921
  Receipt Date: 20210921
  Transmission Date: 20211014
  Serious: No
  Sender: FDA-Public Use
  Company Number: US-BRAINTREE LABORATORIES, INC.-2020BTE04931

PATIENT
  Age: 78 Year
  Sex: Female
  Weight: 63.5 kg

DRUGS (4)
  1. UNSPECIFIED HYPERTENSION MEDICATION [Concomitant]
     Active Substance: UNSPECIFIED INGREDIENT
  2. UNSPECIFIED HIGH CHOLESTEROL MEDICATION [Concomitant]
     Active Substance: UNSPECIFIED INGREDIENT
  3. SUPREP BOWEL PREP [Suspect]
     Active Substance: MAGNESIUM SULFATE\POTASSIUM SULFATE\SODIUM SULFATE
     Indication: COLONOSCOPY
     Dosage: 2 X 6 OZ. BOTTLE, ONCE (1ST BOTTLE AT 4:00 PM AND 2ND BOTTLE AT 4:30 PM)
     Route: 048
     Dates: start: 20201227, end: 20201227
  4. UNSPECIFIED DIABETES MEDICATION [Concomitant]

REACTIONS (2)
  - Dizziness [Recovered/Resolved]
  - Vomiting [Recovered/Resolved]

NARRATIVE: CASE EVENT DATE: 20201227
